FAERS Safety Report 12865326 (Version 2)
Quarter: 2016Q4

REPORT INFORMATION
  Report Type: Spontaneous
  Country: BE (occurrence: BE)
  Receive Date: 20161020
  Receipt Date: 20161229
  Transmission Date: 20170207
  Serious: Yes (Hospitalization, Other)
  Sender: FDA-Public Use
  Company Number: BE-ASTRAZENECA-2016SE82743

PATIENT
  Age: 30707 Day
  Sex: Female
  Weight: 95 kg

DRUGS (14)
  1. FURADANTINE [Concomitant]
     Active Substance: NITROFURANTOIN
  2. TOTALIP [Concomitant]
     Active Substance: ATORVASTATIN
  3. BURINEX [Suspect]
     Active Substance: BUMETANIDE
     Indication: CARDIAC FAILURE
     Route: 048
     Dates: start: 2011
  4. L-THYROXINE [Concomitant]
     Active Substance: LEVOTHYROXINE
     Dosage: 25MCG, 1/DAY
  5. NOVONORM [Concomitant]
     Active Substance: REPAGLINIDE
  6. LANOXIN [Concomitant]
     Active Substance: DIGOXIN
     Dosage: 5/WEEK
  7. PANTOMED [Concomitant]
     Active Substance: DEXPANTHENOL
  8. OMEPRAZOLE. [Concomitant]
     Active Substance: OMEPRAZOLE
     Dosage: 40
  9. BYDUREON [Suspect]
     Active Substance: EXENATIDE
     Indication: GLYCOSYLATED HAEMOGLOBIN INCREASED
     Dosage: WEEK
     Route: 065
     Dates: start: 20160214
  10. BIO-CALCIUM/VITAMIN D3 [Concomitant]
  11. EFFEXOR XR [Concomitant]
     Active Substance: VENLAFAXINE HYDROCHLORIDE
  12. ELIQUIS [Concomitant]
     Active Substance: APIXABAN
  13. BYDUREON [Suspect]
     Active Substance: EXENATIDE
     Indication: GLYCOSYLATED HAEMOGLOBIN INCREASED
     Dosage: PEN 2 MG, WEEK
     Route: 058
  14. BURINEX [Suspect]
     Active Substance: BUMETANIDE
     Indication: CARDIAC FAILURE
     Route: 048
     Dates: start: 201609

REACTIONS (13)
  - Faecaloma [Not Recovered/Not Resolved]
  - Haematuria [Unknown]
  - Constipation [Not Recovered/Not Resolved]
  - Logorrhoea [Unknown]
  - Transient ischaemic attack [Recovered/Resolved]
  - Hiatus hernia [Unknown]
  - Nephrolithiasis [Unknown]
  - Dehydration [Unknown]
  - Cholelithiasis [Unknown]
  - Haematemesis [Unknown]
  - Vaginal haemorrhage [Unknown]
  - Vomiting [Unknown]
  - Therapeutic response unexpected [Unknown]

NARRATIVE: CASE EVENT DATE: 20160219
